FAERS Safety Report 7381271-9 (Version None)
Quarter: 2011Q1

REPORT INFORMATION
  Report Type: 
  Country: None (occurrence: None)
  Receive Date: 20110321
  Receipt Date: 20110315
  Transmission Date: 20110831
  Serious: Yes (Death)
  Sender: FDA-Public Use
  Company Number: 2011SP011952

PATIENT
  Age: 49 Year
  Sex: Male
  Weight: 100.5 kg

DRUGS (6)
  1. ZOFRAN [Concomitant]
  2. ACETAMINOPHEN [Concomitant]
  3. DOCUSATE SODIUM [Concomitant]
  4. KEPPRA [Concomitant]
  5. TEMODAR [Suspect]
     Indication: GLIOMA
     Dosage: 200 MG/M2; 150 MG/M2
     Dates: start: 20100406, end: 20100609
  6. TEMODAR [Suspect]
     Indication: GLIOMA
     Dosage: 200 MG/M2; 150 MG/M2
     Dates: start: 20100708, end: 20110218

REACTIONS (1)
  - DEATH [None]
